FAERS Safety Report 17117492 (Version 1)
Quarter: 2019Q4

REPORT INFORMATION
  Report Type: Report from Study
  Country: BE (occurrence: BE)
  Receive Date: 20191205
  Receipt Date: 20191205
  Transmission Date: 20200122
  Serious: Yes (Other)
  Sender: FDA-Public Use
  Company Number: PHHY2013BE097237

PATIENT
  Age: 43 Year
  Sex: Female

DRUGS (3)
  1. GILENYA [Suspect]
     Active Substance: FINGOLIMOD HYDROCHLORIDE
     Indication: PRODUCT USED FOR UNKNOWN INDICATION
     Route: 065
  2. RIVOTRIL [Concomitant]
     Active Substance: CLONAZEPAM
     Indication: PRODUCT USED FOR UNKNOWN INDICATION
     Dosage: 1 MG, QD
     Route: 065
  3. D-CURE [Concomitant]
     Active Substance: CHOLECALCIFEROL
     Indication: PRODUCT USED FOR UNKNOWN INDICATION
     Dosage: 1 DF, QW (1 AMPOULE WEEKLY)
     Route: 065

REACTIONS (13)
  - Epilepsy [Recovered/Resolved]
  - Loss of consciousness [Unknown]
  - Headache [Recovered/Resolved]
  - Depression [Recovered/Resolved]
  - Muscle tone disorder [Unknown]
  - Confusional state [Unknown]
  - Generalised tonic-clonic seizure [Recovered/Resolved]
  - Stress [Unknown]
  - Muscle rigidity [Unknown]
  - White blood cell count decreased [Unknown]
  - Insomnia [Recovered/Resolved]
  - Somnolence [Unknown]
  - Hypertonia [Unknown]

NARRATIVE: CASE EVENT DATE: 20130726
